FAERS Safety Report 4734845-5 (Version None)
Quarter: 2005Q3

REPORT INFORMATION
  Report Type: 
  Country: None (occurrence: None)
  Receive Date: 20050721
  Receipt Date: 20050425
  Transmission Date: 20060218
  Serious: No
  Sender: FDA-Public Use
  Company Number: 2005SP000356

PATIENT
  Age: 60 Year
  Sex: Female

DRUGS (6)
  1. LUNESTA [Suspect]
     Indication: CATAPLEXY
     Dosage: SEE IMAGE
     Dates: start: 20050401, end: 20050401
  2. LUNESTA [Suspect]
     Indication: CATAPLEXY
     Dosage: SEE IMAGE
     Dates: start: 20050401, end: 20050401
  3. DALMANE [Concomitant]
  4. RESTORIL [Concomitant]
  5. DEXTROAMPHETAMINE [Concomitant]
  6. RITALIN [Concomitant]

REACTIONS (3)
  - ABDOMINAL PAIN UPPER [None]
  - NAUSEA [None]
  - VOMITING [None]
